FAERS Safety Report 12280836 (Version 1)
Quarter: 2016Q2

REPORT INFORMATION
  Report Type: Spontaneous
  Country: US (occurrence: None)
  Receive Date: 20160418
  Receipt Date: 20160418
  Transmission Date: 20160815
  Serious: No
  Sender: FDA-Public Use
  Company Number: None

PATIENT
  Sex: Female

DRUGS (2)
  1. LYRICA [Suspect]
     Active Substance: PREGABALIN
  2. COLCHICINE. [Suspect]
     Active Substance: COLCHICINE

REACTIONS (6)
  - Fall [None]
  - Depression [None]
  - Activities of daily living impaired [None]
  - Drug ineffective [None]
  - Blood glucose increased [None]
  - Hallucination [None]
